FAERS Safety Report 24085093 (Version 1)
Quarter: 2024Q3

REPORT INFORMATION
  Report Type: Spontaneous
  Country: ES (occurrence: ES)
  Receive Date: 20240712
  Receipt Date: 20240712
  Transmission Date: 20241017
  Serious: No
  Sender: PIERRE FABRE MEDICAMENT
  Company Number: ES-PFM-2021-11051

PATIENT
  Age: 3 Month
  Sex: Male

DRUGS (3)
  1. PROPRANOLOL HYDROCHLORIDE [Suspect]
     Active Substance: PROPRANOLOL HYDROCHLORIDE
     Indication: Haemangioma
     Dosage: 3 MG, BID (2/DAY)
     Route: 048
     Dates: start: 20211103, end: 20211109
  2. PROPRANOLOL HYDROCHLORIDE [Suspect]
     Active Substance: PROPRANOLOL HYDROCHLORIDE
     Dosage: 6 MG, BID (2/DAY)
     Route: 048
     Dates: start: 20211110, end: 20211116
  3. PROPRANOLOL HYDROCHLORIDE [Suspect]
     Active Substance: PROPRANOLOL HYDROCHLORIDE
     Dosage: 9 MG, BID (2/DAY)
     Route: 048
     Dates: start: 20211117

REACTIONS (1)
  - Infantile spitting up [Recovered/Resolved]

NARRATIVE: CASE EVENT DATE: 20211101
